FAERS Safety Report 7731074-8 (Version None)
Quarter: 2011Q3

REPORT INFORMATION
  Report Type: 
  Country: None (occurrence: None)
  Receive Date: 20110906
  Receipt Date: 20110906
  Transmission Date: 20111222
  Serious: Yes (Disabling)
  Sender: FDA-Public Use
  Company Number: None

PATIENT
  Age: 15 Year
  Sex: Male
  Weight: 37.7 kg

DRUGS (2)
  1. MEROPENEM [Suspect]
     Indication: ORCHITIS
     Dosage: 750 MG
     Route: 040
     Dates: start: 20110825, end: 20110902
  2. GENTAMICIN [Concomitant]

REACTIONS (1)
  - TINNITUS [None]
